FAERS Safety Report 5842466-6 (Version None)
Quarter: 2008Q3

REPORT INFORMATION
  Report Type: 
  Country: None (occurrence: None)
  Receive Date: 20080808
  Receipt Date: 20060123
  Transmission Date: 20090109
  Serious: Yes (Other)
  Sender: FDA-Public Use
  Company Number: 2006-00058FE

PATIENT
  Age: 62 Year
  Sex: Male

DRUGS (6)
  1. TEV-TROPIN [Suspect]
     Indication: GROWTH HORMONE DEFICIENCY
     Dosage: 2.4 MG SC
     Route: 058
     Dates: start: 20050930, end: 20060120
  2. TEV-TROPIN [Suspect]
     Indication: OSTEOPOROSIS
     Dosage: 2.4 MG SC
     Route: 058
     Dates: start: 20050930, end: 20060120
  3. HUMATROPE [Concomitant]
  4. ATORVASTATIN CALCIUM [Concomitant]
  5. VARDENAFIL HYDROCHLORIDE [Concomitant]
  6. TESTOSTERONE CIPIONATE [Concomitant]

REACTIONS (1)
  - PROSTATE CANCER [None]
